FAERS Safety Report 11363546 (Version 2)
Quarter: 2024Q3

REPORT INFORMATION
  Report Type: Spontaneous
  Country: DE (occurrence: DE)
  Receive Date: 20150811
  Receipt Date: 20240916
  Transmission Date: 20241017
  Serious: Yes (Death, Congenital Anomaly, Other)
  Sender: AUROBINDO
  Company Number: DE-AUROBINDO-AUR-APL-2015-06791

PATIENT
  Sex: Male
  Weight: 0.375 kg

DRUGS (6)
  1. PAROXETINE [Suspect]
     Active Substance: PAROXETINE
     Indication: Anxiety disorder
     Dosage: 30 MG, DAILY (/ NO INTAKE IN GESTATIONAL WEEK 4+0 UNTIL 8+5)
     Route: 064
     Dates: start: 20140625, end: 20141122
  2. METFORMIN [Suspect]
     Active Substance: METFORMIN HYDROCHLORIDE
     Indication: Polycystic ovarian syndrome
     Dosage: UNK
     Route: 064
     Dates: start: 20140625, end: 20140807
  3. SERTRALINE [Suspect]
     Active Substance: SERTRALINE HYDROCHLORIDE
     Indication: Anxiety disorder
     Dosage: UNK
     Route: 064
     Dates: start: 20140723, end: 20140825
  4. BECLOMETHASONE DIPROPIONATE [Concomitant]
     Active Substance: BECLOMETHASONE DIPROPIONATE
     Indication: Asthma
     Dosage: 0.2 MG, DAILY
     Route: 064
     Dates: start: 20140622, end: 20141122
  5. ALBUTEROL [Concomitant]
     Active Substance: ALBUTEROL
     Indication: Asthma
     Dosage: UNK
     Route: 064
     Dates: start: 20140625, end: 20141122
  6. FOLIC ACID [Concomitant]
     Active Substance: FOLIC ACID
     Indication: Prophylaxis of neural tube defect
     Dosage: 0.8 [MG/D ]/ REDUCTION TO 0.4 MG/D
     Route: 064

REACTIONS (2)
  - Congenital hydrocephalus [Fatal]
  - Foetal exposure during pregnancy [Unknown]
